FAERS Safety Report 9221643 (Version 2)
Quarter: 2014Q2

REPORT INFORMATION
  Report Type: Spontaneous
  Country: US (occurrence: US)
  Receive Date: 20130410
  Receipt Date: 20140626
  Transmission Date: 20141212
  Serious: Yes (Hospitalization, Other)
  Sender: FDA-Public Use
  Company Number: US-AMGEN-USASP2013021212

PATIENT
  Age: 63 Year
  Sex: Male
  Weight: 99.77 kg

DRUGS (20)
  1. ENBREL [Suspect]
     Indication: PSORIATIC ARTHROPATHY
     Dosage: 50 MG, QWK
     Route: 058
  2. HUMIRA [Suspect]
     Indication: PSORIATIC ARTHROPATHY
     Dosage: 40 MG, 1 IN 2 WEEK
     Route: 065
     Dates: start: 201303, end: 20140112
  3. DICLOFENAC [Suspect]
     Indication: PAIN
     Dosage: 75 MG, UNK
     Route: 065
  4. SULFADIAZINE [Suspect]
     Indication: PRODUCT USED FOR UNKNOWN INDICATION
     Dosage: UNK
     Route: 065
  5. PREVACID [Suspect]
     Indication: GASTROOESOPHAGEAL REFLUX DISEASE
     Dosage: 30 MG, QD
     Route: 065
  6. COREG [Concomitant]
     Dosage: 12.5 MG, UNK
  7. PROCRIT                            /00909301/ [Concomitant]
     Dosage: 10000 UNK, UNK,/ML
  8. AMBIEN [Concomitant]
     Dosage: 5 MG, UNK
  9. LASIX                              /00032601/ [Concomitant]
     Dosage: 20 MG, UNK
  10. MELOXICAM [Concomitant]
     Dosage: 7.5 MG, UNK
  11. PREDNISONE [Concomitant]
     Dosage: 5 MG, UNK
  12. LIPITOR [Concomitant]
     Dosage: 10 MG, UNK
  13. ECOTRIN [Concomitant]
     Dosage: 325 MG, UNK
  14. CELEXA                             /00582602/ [Concomitant]
     Dosage: 10 MG, UNK
  15. VITAMIN D                          /00107901/ [Concomitant]
     Dosage: 1000 UNIT, UNK
  16. COLCRYS [Concomitant]
     Dosage: UNK
  17. BENAZEPRIL [Concomitant]
     Dosage: UNK
  18. AMIODARONE [Concomitant]
     Dosage: UNK
  19. METHOTREXATE [Concomitant]
     Dosage: UNK
  20. PENICILLIN                         /00000901/ [Concomitant]
     Dosage: UNK

REACTIONS (18)
  - Cardiac disorder [Recovered/Resolved]
  - Dehydration [Recovered/Resolved]
  - Nausea [Unknown]
  - Diarrhoea [Recovered/Resolved]
  - Hypersensitivity [Recovered/Resolved]
  - Muscle spasms [Recovered/Resolved]
  - Gait disturbance [Unknown]
  - Blood calcium decreased [Recovered/Resolved]
  - Blood potassium decreased [Recovered/Resolved]
  - Abdominal discomfort [Unknown]
  - Joint swelling [Unknown]
  - Malaise [Unknown]
  - Drug interaction [Unknown]
  - Blood magnesium decreased [Recovered/Resolved]
  - Arthralgia [Unknown]
  - Cardiac failure [Unknown]
  - Drug hypersensitivity [Unknown]
  - Decreased appetite [Unknown]
